FAERS Safety Report 11272512 (Version 1)
Quarter: 2015Q3

REPORT INFORMATION
  Report Type: Spontaneous
  Country: US (occurrence: US)
  Receive Date: 20150715
  Receipt Date: 20150715
  Transmission Date: 20151125
  Serious: No
  Sender: FDA-Public Use
  Company Number: PHEH2015US013505

PATIENT
  Sex: Male

DRUGS (1)
  1. SANDIMMUNE [Suspect]
     Active Substance: CYCLOSPORINE
     Indication: PLATELET COUNT DECREASED
     Dosage: 400 MG, UNK
     Route: 065
     Dates: start: 20150708

REACTIONS (1)
  - Off label use [Unknown]
